FAERS Safety Report 19246791 (Version 2)
Quarter: 2022Q2

REPORT INFORMATION
  Report Type: Spontaneous
  Country: US (occurrence: US)
  Receive Date: 20210512
  Receipt Date: 20220503
  Transmission Date: 20220721
  Serious: Yes (Hospitalization)
  Sender: FDA-Public Use
  Company Number: US-CADILA HEALTHCARE LIMITED-US-ZYDUS-065479

PATIENT

DRUGS (2)
  1. BACLOFEN [Suspect]
     Active Substance: BACLOFEN
     Indication: Product used for unknown indication
     Dosage: 10 MILLIGRAM, TID
     Route: 048
  2. BACLOFEN [Suspect]
     Active Substance: BACLOFEN
     Dosage: RESTARTED
     Route: 065

REACTIONS (10)
  - Tremor [Recovering/Resolving]
  - Hyperpyrexia [Recovering/Resolving]
  - Paraesthesia [Recovering/Resolving]
  - Hypertension [Recovering/Resolving]
  - Tachypnoea [Recovering/Resolving]
  - Tachycardia [Recovering/Resolving]
  - Hallucination [Recovering/Resolving]
  - Clonus [Recovering/Resolving]
  - Muscle rigidity [Recovering/Resolving]
  - Drug withdrawal syndrome [Recovering/Resolving]
